FAERS Safety Report 8523880-7 (Version None)
Quarter: 2012Q3

REPORT INFORMATION
  Report Type: 
  Country: None (occurrence: None)
  Receive Date: 20120720
  Receipt Date: 20120718
  Transmission Date: 20120928
  Serious: Yes (Other)
  Sender: FDA-Public Use
  Company Number: CO-PFIZER INC-2012174971

PATIENT
  Age: 81 Year
  Sex: Male

DRUGS (4)
  1. METOPROLOL TARTRATE [Concomitant]
     Indication: ARRHYTHMIA
     Dosage: 50 MG, 1X/DAY
     Route: 048
  2. CORDARONE [Concomitant]
     Indication: ARRHYTHMIA
     Dosage: 200 MG, 1X/DAY
     Route: 048
  3. NORVASC [Suspect]
     Indication: HEART RATE DECREASED
     Dosage: 10 MG, 2X/DAY
     Route: 048
     Dates: start: 20020101
  4. LASIX [Concomitant]
     Indication: DIURETIC THERAPY
     Dosage: 40 MG, 1X/DAY
     Route: 048

REACTIONS (1)
  - CARDIAC PACEMAKER INSERTION [None]
